FAERS Safety Report 16066683 (Version 1)
Quarter: 2019Q1

REPORT INFORMATION
  Report Type: Spontaneous
  Country: PT (occurrence: PT)
  Receive Date: 20190313
  Receipt Date: 20190313
  Transmission Date: 20190418
  Serious: Yes (Hospitalization, Other)
  Sender: FDA-Public Use
  Company Number: PT-VIIV HEALTHCARE LIMITED-PT2019043877

PATIENT
  Age: 70 Year
  Sex: Male

DRUGS (3)
  1. TENOFOVIR [Suspect]
     Active Substance: TENOFOVIR
     Indication: HIV INFECTION
     Dosage: UNK
     Route: 065
  2. DOLUTEGRAVIR [Suspect]
     Active Substance: DOLUTEGRAVIR
     Indication: HIV INFECTION
     Dosage: HLAB5701-
     Route: 065
  3. EMTRICITABINA [Suspect]
     Active Substance: EMTRICITABINE
     Indication: HIV INFECTION
     Dosage: UNK
     Route: 065

REACTIONS (21)
  - Urine output decreased [Recovering/Resolving]
  - Renal tubular dysfunction [Recovering/Resolving]
  - Glycosuria [Recovering/Resolving]
  - Hypoalbuminaemia [Recovering/Resolving]
  - Aminoaciduria [Recovering/Resolving]
  - Hyperphosphaturia [Recovering/Resolving]
  - Vomiting [Recovering/Resolving]
  - Dehydration [Recovering/Resolving]
  - Hypophosphataemia [Recovering/Resolving]
  - Azotaemia [Recovering/Resolving]
  - Hyperchloraemia [Recovering/Resolving]
  - Fanconi syndrome acquired [Recovered/Resolved]
  - Proteinuria [Recovering/Resolving]
  - Metabolic acidosis [Recovering/Resolving]
  - Decreased appetite [Recovering/Resolving]
  - Asthenia [Recovering/Resolving]
  - Haematuria [Recovering/Resolving]
  - Weight decreased [Recovering/Resolving]
  - Cachexia [Recovering/Resolving]
  - Acute kidney injury [Recovering/Resolving]
  - Hypokalaemia [Recovering/Resolving]
